FAERS Safety Report 16712631 (Version 2)
Quarter: 2019Q3

REPORT INFORMATION
  Report Type: Spontaneous
  Country: DE (occurrence: DE)
  Receive Date: 20190816
  Receipt Date: 20190909
  Transmission Date: 20191004
  Serious: Yes (Congenital Anomaly)
  Sender: FDA-Public Use
  Company Number: PHHY2019DE186371

PATIENT
  Sex: Male

DRUGS (2)
  1. COPAXONE [Suspect]
     Active Substance: GLATIRAMER ACETATE
     Indication: FOETAL EXPOSURE DURING PREGNANCY
     Dosage: MATERNAL DOSE: 40 MG
     Route: 064
  2. GILENYA [Suspect]
     Active Substance: FINGOLIMOD HYDROCHLORIDE
     Indication: FOETAL EXPOSURE DURING PREGNANCY
     Dosage: MATERNAL DOSE: 0.5 MG
     Route: 064

REACTIONS (5)
  - Congenital hearing disorder [Recovered/Resolved with Sequelae]
  - Maternal exposure before pregnancy [Unknown]
  - Congenital foot malformation [Recovered/Resolved with Sequelae]
  - Polydactyly [Recovered/Resolved with Sequelae]
  - Cleft lip and palate [Recovered/Resolved with Sequelae]
